FAERS Safety Report 6054866-2 (Version None)
Quarter: 2009Q1

REPORT INFORMATION
  Report Type: 
  Country: None (occurrence: None)
  Receive Date: 20090122
  Receipt Date: 20090116
  Transmission Date: 20090719
  Serious: Yes (Hospitalization, Other)
  Sender: FDA-Public Use
  Company Number: 2009SP001101

PATIENT
  Age: 68 Year
  Sex: Female
  Weight: 41 kg

DRUGS (7)
  1. TEMODAL [Suspect]
     Indication: MALIGNANT GLIOMA
     Dosage: PO
     Route: 048
     Dates: start: 20080218
  2. TEMODAL [Suspect]
     Indication: RECURRENT CANCER
     Dosage: PO
     Route: 048
     Dates: start: 20080218
  3. TEMODAL [Suspect]
     Indication: MALIGNANT GLIOMA
     Dosage: PO
     Route: 048
     Dates: start: 20081213
  4. TEMODAL [Suspect]
     Indication: RECURRENT CANCER
     Dosage: PO
     Route: 048
     Dates: start: 20081213
  5. RINDERON [Concomitant]
  6. GAMOFA [Concomitant]
  7. ZOFRAN ZYDIS [Concomitant]

REACTIONS (1)
  - HEMIPLEGIA [None]
